FAERS Safety Report 13795062 (Version 1)
Quarter: 2017Q3

REPORT INFORMATION
  Report Type: Spontaneous
  Country: FR (occurrence: FR)
  Receive Date: 20170726
  Receipt Date: 20170726
  Transmission Date: 20171127
  Serious: Yes (Life-Threatening, Hospitalization)
  Sender: FDA-Public Use
  Company Number: FR-BAYER-2013-060567

PATIENT
  Age: 28 Year
  Sex: Female
  Weight: 57 kg

DRUGS (1)
  1. YAZ [Suspect]
     Active Substance: DROSPIRENONE\ETHINYL ESTRADIOL
     Indication: ACNE
     Dosage: UNK
     Route: 048
     Dates: start: 20111216, end: 201206

REACTIONS (22)
  - Pupils unequal [Recovered/Resolved with Sequelae]
  - Complication associated with device [Not Recovered/Not Resolved]
  - Abdominal pain upper [None]
  - Dizziness [Recovered/Resolved with Sequelae]
  - Hemiparesis [Recovered/Resolved with Sequelae]
  - Malaise [None]
  - Eye pain [Recovered/Resolved with Sequelae]
  - Visual impairment [Recovered/Resolved with Sequelae]
  - Headache [Recovered/Resolved with Sequelae]
  - Partial seizures [Recovered/Resolved with Sequelae]
  - Visual field defect [Recovered/Resolved with Sequelae]
  - Haemorrhagic cerebral infarction [Recovered/Resolved with Sequelae]
  - Brain oedema [Recovered/Resolved with Sequelae]
  - Brain herniation [Recovered/Resolved with Sequelae]
  - Disability [Not Recovered/Not Resolved]
  - Impaired work ability [Not Recovered/Not Resolved]
  - Cerebral venous thrombosis [Recovered/Resolved with Sequelae]
  - Pupillary reflex impaired [Recovered/Resolved with Sequelae]
  - Hepatic function abnormal [None]
  - Fatigue [Not Recovered/Not Resolved]
  - Vomiting [None]
  - Disturbance in attention [Not Recovered/Not Resolved]

NARRATIVE: CASE EVENT DATE: 201203
